FAERS Safety Report 6211497-9 (Version None)
Quarter: 2009Q2

REPORT INFORMATION
  Report Type: 
  Country: None (occurrence: None)
  Receive Date: 20090602
  Receipt Date: 20090528
  Transmission Date: 20091009
  Serious: Yes (Hospitalization)
  Sender: FDA-Public Use
  Company Number: JP-AVENTIS-200910794JP

PATIENT
  Age: 60 Year
  Sex: Male
  Weight: 42.5 kg

DRUGS (10)
  1. CLAFORAN [Suspect]
     Indication: MENINGITIS
     Route: 041
     Dates: start: 20090224, end: 20090316
  2. VICCILLIN [Suspect]
     Indication: MENINGITIS
     Route: 041
     Dates: start: 20090224, end: 20090316
  3. VICCLOX [Concomitant]
     Indication: ENCEPHALITIS HERPES
     Route: 041
     Dates: start: 20090224, end: 20090226
  4. PISULCIN [Concomitant]
     Indication: PNEUMONIA
     Route: 041
     Dates: start: 20090222, end: 20090223
  5. WARFARIN [Concomitant]
     Route: 048
     Dates: start: 20090228, end: 20090304
  6. WARFARIN [Concomitant]
     Route: 048
     Dates: start: 20090305
  7. SOLULACT [Concomitant]
     Route: 041
     Dates: start: 20090224, end: 20090224
  8. SOLUTIONS AFFECTING THE ELECTROLYTE BALANCE [Concomitant]
     Route: 041
     Dates: start: 20090224, end: 20090224
  9. FLUNITRAZEPAM [Concomitant]
     Route: 048
     Dates: start: 20090307
  10. NOVOLIN R [Concomitant]
     Dosage: DOSE: 2-4-2 UNITS
     Dates: start: 20090307, end: 20090319

REACTIONS (2)
  - HEPATIC FUNCTION ABNORMAL [None]
  - PANCYTOPENIA [None]
